FAERS Safety Report 8619423-X (Version None)
Quarter: 2012Q3

REPORT INFORMATION
  Report Type: 
  Country: None (occurrence: None)
  Receive Date: 20120824
  Receipt Date: 20120813
  Transmission Date: 20120928
  Serious: Yes (Hospitalization, Other)
  Sender: FDA-Public Use
  Company Number: FR-BRISTOL-MYERS SQUIBB COMPANY-16856601

PATIENT
  Age: 87 Year
  Sex: Male

DRUGS (8)
  1. ASPIRIN [Suspect]
     Dosage: 1 DF:KARDEGIC 75 MG POWDER FOR ORAL SOLUTION IN SACHET
     Route: 048
     Dates: start: 20120201
  2. FUROSEMIDE [Concomitant]
     Dosage: LASILIX RETARD 60 MG CAPSULE
     Dates: start: 20120201
  3. COUMADIN [Suspect]
     Dosage: 1 DF:COUMADINE 2 MG SCORED TABLET (WARFARIN SODIUM) 1 UNK-2MAR12(1 MONTH) RESUMED UNK DATE
     Route: 048
     Dates: start: 20120201
  4. FLUTICASONE PROPIONATE/SALMETEROL [Concomitant]
     Dosage: SERETIDE DISKUS 500 (FLUTICASONE PROPIONATE, SALMETEROL) 2 INHALATIONS /D
     Route: 055
  5. PROCORALAN [Concomitant]
     Dosage: PROCORALAN 2.5 MG FILM-COATED TABLET (IVABRADINE)
     Route: 048
     Dates: start: 20120208
  6. SPASFON [Concomitant]
     Route: 048
     Dates: start: 20120201
  7. ATORVASTATIN [Concomitant]
     Dosage: TAHOR 80 MG FILM-COATED TABLET (ATORVASTATINE) 1/D;
     Dates: start: 20120201
  8. LEVOTHYROXINE SODIUM [Concomitant]
     Dosage: LEVOTHYROX 25 MICRO G SCORED TABLET (LEVOTHYROXINE SODIUM)
     Route: 048
     Dates: start: 20120217

REACTIONS (4)
  - EROSIVE OESOPHAGITIS [None]
  - GASTROINTESTINAL HAEMORRHAGE [None]
  - MELAENA [None]
  - ANAEMIA [None]
